FAERS Safety Report 6110147-X (Version None)
Quarter: 2009Q1

REPORT INFORMATION
  Report Type: 
  Country: None (occurrence: None)
  Receive Date: 20090306
  Receipt Date: 20090227
  Transmission Date: 20090719
  Serious: Yes (Hospitalization)
  Sender: FDA-Public Use
  Company Number: WAES 0903USA00432

PATIENT
  Age: 64 Year
  Sex: Female
  Weight: 112.9457 kg

DRUGS (5)
  1. PRINIVIL [Suspect]
     Indication: HYPERTENSION
     Dosage: PO
     Route: 048
     Dates: start: 20080116, end: 20090104
  2. TAXOL [Suspect]
     Indication: BREAST CANCER FEMALE
     Dosage: 142 MG/IV
     Route: 042
     Dates: start: 20070315
  3. AVASTIN [Suspect]
     Indication: BREAST CANCER FEMALE
     Dosage: 1128 MG/IV
     Route: 042
     Dates: start: 20070315
  4. PYRIDOXINE [Concomitant]
  5. VITAMINS [Concomitant]

REACTIONS (7)
  - CONTUSION [None]
  - DEHYDRATION [None]
  - DYSPNOEA [None]
  - FALL [None]
  - FLUID INTAKE REDUCED [None]
  - HYPOTENSION [None]
  - SYNCOPE [None]
